FAERS Safety Report 15698211 (Version 1)
Quarter: 2018Q4

REPORT INFORMATION
  Report Type: Report from Study
  Country: AU (occurrence: AU)
  Receive Date: 20181207
  Receipt Date: 20181207
  Transmission Date: 20190205
  Serious: Yes (Other)
  Sender: FDA-Public Use
  Company Number: AU-TOLMAR, INC.-2018AU012007

PATIENT

DRUGS (2)
  1. COSUDEX [Concomitant]
     Active Substance: BICALUTAMIDE
  2. ELIGARD [Suspect]
     Active Substance: LEUPROLIDE ACETATE
     Indication: PROSTATE CANCER
     Dosage: 45 MG, SIX MONTHLY
     Route: 058
     Dates: start: 20170317, end: 20180616

REACTIONS (2)
  - Terminal state [Unknown]
  - Small cell carcinoma [Unknown]
